FAERS Safety Report 9734321 (Version 1)
Quarter: 2013Q4

REPORT INFORMATION
  Report Type: Spontaneous
  Country: BR (occurrence: BR)
  Receive Date: 20131206
  Receipt Date: 20131206
  Transmission Date: 20140711
  Serious: Yes (Other)
  Sender: FDA-Public Use
  Company Number: BR-AMGEN-BRASP2013085525

PATIENT
  Age: 49 Year
  Sex: 0
  Weight: 80 kg

DRUGS (4)
  1. ENBREL [Suspect]
     Indication: ANKYLOSING SPONDYLITIS
     Dosage: 50 MG, WEEKLY
     Route: 058
     Dates: start: 201308, end: 2013
  2. ARAVA [Concomitant]
     Dosage: 20 MG, 1X/DAY
     Route: 048
  3. PREDNISONE [Concomitant]
     Dosage: 10 MG (2 TABLETS OF 5 MG), DAILY
  4. PROFENID [Concomitant]
     Dosage: 50 MG, 3X/DAY

REACTIONS (4)
  - Ankylosing spondylitis [Unknown]
  - Joint injury [Unknown]
  - Ankle deformity [Unknown]
  - Arthropathy [Not Recovered/Not Resolved]
